FAERS Safety Report 6442193-0 (Version None)
Quarter: 2009Q4

REPORT INFORMATION
  Report Type: 
  Country: None (occurrence: None)
  Receive Date: 20091112
  Receipt Date: 20091102
  Transmission Date: 20100525
  Serious: Yes (Other)
  Sender: FDA-Public Use
  Company Number: ADR46782009

PATIENT
  Age: 63 Year
  Sex: Male

DRUGS (3)
  1. SIMVASTATIN [Suspect]
     Dosage: 20 MG
     Route: 048
     Dates: start: 20060818, end: 20061016
  2. ATORVASTATIN [Concomitant]
  3. OMEPRAZOLE [Concomitant]

REACTIONS (1)
  - DEPRESSION [None]
